FAERS Safety Report 9872267 (Version 2)
Quarter: 2014Q1

REPORT INFORMATION
  Report Type: Spontaneous
  Country: US (occurrence: US)
  Receive Date: 20140205
  Receipt Date: 20140205
  Transmission Date: 20141002
  Serious: No
  Sender: FDA-Public Use
  Company Number: US-ALLERGAN-1305958US

PATIENT
  Sex: Female

DRUGS (3)
  1. BOTOX COSMETIC [Suspect]
     Indication: SKIN WRINKLING
     Dosage: 9.96 UNITS, SINGLE
     Route: 030
     Dates: start: 20130329, end: 20130329
  2. BOTOX COSMETIC [Suspect]
     Indication: SKIN WRINKLING
     Dosage: 9.96 UNITS, SINGLE
     Route: 030
     Dates: start: 20130329, end: 20130329
  3. BOTOX COSMETIC [Suspect]
     Indication: SKIN WRINKLING
     Dosage: 9.96 UNITS, SINGLE
     Route: 030
     Dates: start: 20130329, end: 20130329

REACTIONS (1)
  - Therapeutic response decreased [Unknown]
